FAERS Safety Report 24207575 (Version 2)
Quarter: 2024Q4

REPORT INFORMATION
  Report Type: Spontaneous
  Country: US (occurrence: US)
  Receive Date: 20240814
  Receipt Date: 20241203
  Transmission Date: 20250115
  Serious: Yes (Hospitalization, Other)
  Sender: NOVO NORDISK
  Company Number: US-NOVOPROD-1267714

PATIENT
  Age: 39 Year
  Sex: Male
  Weight: 145.13 kg

DRUGS (4)
  1. WEGOVY [Suspect]
     Active Substance: SEMAGLUTIDE
     Indication: Obesity
     Dosage: 0.5 MG, QW
     Route: 058
     Dates: start: 20230310, end: 20230512
  2. WEGOVY [Suspect]
     Active Substance: SEMAGLUTIDE
     Indication: Obesity
     Dosage: 1 MG, QW
     Route: 058
     Dates: start: 20230512, end: 20230623
  3. TESTOSTERONE [Concomitant]
     Active Substance: TESTOSTERONE
     Indication: Autoimmune thyroiditis
     Dosage: UNK
     Dates: start: 20120101
  4. LEVOTHYROXINE [Concomitant]
     Active Substance: LEVOTHYROXINE
     Indication: Blood cholesterol increased
     Dosage: UNK

REACTIONS (6)
  - Decreased appetite [Recovered/Resolved]
  - Ileus [Recovered/Resolved]
  - Small intestinal obstruction [Recovered/Resolved]
  - Nausea [Recovered/Resolved]
  - Diarrhoea [Recovered/Resolved]
  - Inappropriate schedule of product administration [Unknown]

NARRATIVE: CASE EVENT DATE: 20231026
